FAERS Safety Report 19796984 (Version 1)
Quarter: 2021Q3

REPORT INFORMATION
  Report Type: Spontaneous
  Country: US (occurrence: US)
  Receive Date: 20210906
  Receipt Date: 20210906
  Transmission Date: 20211014
  Serious: Yes (Death, Other)
  Sender: FDA-Public Use
  Company Number: US-ROCHE-2905106

PATIENT
  Age: 74 Year
  Sex: Female
  Weight: 103 kg

DRUGS (1)
  1. ACTEMRA [Suspect]
     Active Substance: TOCILIZUMAB
     Indication: COVID-19
     Dosage: ONGOING: NO
     Route: 042
     Dates: start: 20210805, end: 20210805

REACTIONS (3)
  - Death [Fatal]
  - Pseudomonal bacteraemia [Unknown]
  - Pneumonia [Unknown]

NARRATIVE: CASE EVENT DATE: 20210827
